FAERS Safety Report 5887072-2 (Version None)
Quarter: 2008Q3

REPORT INFORMATION
  Report Type: 
  Country: None (occurrence: None)
  Receive Date: 20080915
  Receipt Date: 20080901
  Transmission Date: 20090109
  Serious: Yes (Other)
  Sender: FDA-Public Use
  Company Number: 1000000908

PATIENT
  Age: 25 Year

DRUGS (2)
  1. CITALOPRAM HYDROBROMIDE [Suspect]
     Dosage: MAX. 560 MG (ONCE),ORAL
     Route: 048
     Dates: start: 20060101, end: 20060101
  2. RISPERIDONE [Suspect]
     Dosage: 179 MG (179 MG,ONCE),ORAL
     Route: 048
     Dates: start: 20060101, end: 20060101

REACTIONS (5)
  - HYPERREFLEXIA [None]
  - MULTIPLE DRUG OVERDOSE INTENTIONAL [None]
  - RESTLESSNESS [None]
  - SUICIDE ATTEMPT [None]
  - TACHYCARDIA [None]
